FAERS Safety Report 21498584 (Version 1)
Quarter: 2022Q4

REPORT INFORMATION
  Report Type: Spontaneous
  Country: US (occurrence: None)
  Receive Date: 20221021
  Receipt Date: 20221021
  Transmission Date: 20230113
  Serious: Yes (Hospitalization)
  Sender: FDA-Public Use
  Company Number: None

PATIENT
  Age: 56 Year
  Sex: Female

DRUGS (1)
  1. HUMIRA [Suspect]
     Active Substance: ADALIMUMAB
     Dosage: 40MG OTHER  SUBCUTANEOUS?
     Route: 058

REACTIONS (3)
  - Fall [None]
  - Hip fracture [None]
  - Therapy interrupted [None]

NARRATIVE: CASE EVENT DATE: 20220515
